FAERS Safety Report 12512451 (Version 1)
Quarter: 2016Q2

REPORT INFORMATION
  Report Type: Spontaneous
  Country: US (occurrence: None)
  Receive Date: 20160629
  Receipt Date: 20160629
  Transmission Date: 20160815
  Serious: Yes (Disabling, Other)
  Sender: FDA-Public Use
  Company Number: None

PATIENT
  Age: 63 Year
  Sex: Female
  Weight: 117.94 kg

DRUGS (22)
  1. DULOXETINE CAP 30MG DR, 30 MG ELI LILY-LUPIN PHARMACEUT . [Suspect]
     Active Substance: DULOXETINE
     Indication: BACK PAIN
     Dosage: 4 CAPSULE(S) IN THE MORNING TAKEN BY MOUTH
     Route: 048
  2. D-AMPHETAMINE SALT [Concomitant]
  3. METOPROLOL. [Concomitant]
     Active Substance: METOPROLOL
  4. DEPLIN [Concomitant]
     Active Substance: LEVOMEFOLATE CALCIUM
  5. MULTI-VITAMIN [Concomitant]
     Active Substance: .ALPHA.-TOCOPHEROL ACETATE, DL-\ASCORBIC ACID\CYANOCOBALAMIN\FLUORIDE ION\FOLIC ACID\NIACIN\PYRIDOXINE\RIBOFLAVIN\THIAMINE\VITAMIN A\VITAMIN D
  6. TUMERIC [Concomitant]
     Active Substance: TURMERIC
  7. DULOXETINE CAP 30MG DR, 30 MG ELI LILY-LUPIN PHARMACEUT . [Suspect]
     Active Substance: DULOXETINE
     Indication: FIBROMYALGIA
     Dosage: 4 CAPSULE(S) IN THE MORNING TAKEN BY MOUTH
     Route: 048
  8. DULOXETINE CAP 30MG DR, 30 MG ELI LILY-LUPIN PHARMACEUT . [Suspect]
     Active Substance: DULOXETINE
     Indication: OSTEOARTHRITIS
     Dosage: 4 CAPSULE(S) IN THE MORNING TAKEN BY MOUTH
     Route: 048
  9. NIFEDIPINE. [Concomitant]
     Active Substance: NIFEDIPINE
  10. FISH OIL [Concomitant]
     Active Substance: FISH OIL
  11. CALCIUM [Concomitant]
     Active Substance: CALCIUM
  12. BUPROPION. [Concomitant]
     Active Substance: BUPROPION
  13. VITAMIN C [Concomitant]
     Active Substance: ASCORBIC ACID
  14. LOW DOSE ASPIRIN [Concomitant]
     Active Substance: ASPIRIN
  15. SYNTHROID [Concomitant]
     Active Substance: LEVOTHYROXINE SODIUM
  16. VITAMIN D3 [Concomitant]
     Active Substance: CHOLECALCIFEROL
  17. BIOTIN [Concomitant]
     Active Substance: BIOTIN
  18. ACETOMINOPHEN [Concomitant]
  19. CELEBREX [Concomitant]
     Active Substance: CELECOXIB
  20. TRIAMTERENE/HYDROCHLOROTHIAZIDE [Concomitant]
     Active Substance: HYDROCHLOROTHIAZIDE\TRIAMTERENE
  21. VITAMIN E [Concomitant]
     Active Substance: .ALPHA.-TOCOPHEROL
  22. GLUCOSAMINE-CHONDOITAN [Concomitant]

REACTIONS (23)
  - Abdominal pain [None]
  - Toothache [None]
  - Fatigue [None]
  - Asthenia [None]
  - Headache [None]
  - Memory impairment [None]
  - Drug withdrawal syndrome [None]
  - Activities of daily living impaired [None]
  - Nausea [None]
  - Vomiting [None]
  - Eructation [None]
  - Hypersomnia [None]
  - Alopecia [None]
  - Hyperhidrosis [None]
  - Myalgia [None]
  - Malaise [None]
  - Depression [None]
  - Hot flush [None]
  - Arthralgia [None]
  - Constipation [None]
  - Vertigo [None]
  - Flatulence [None]
  - Vision blurred [None]

NARRATIVE: CASE EVENT DATE: 20160428
